FAERS Safety Report 8431430-9 (Version None)
Quarter: 2012Q2

REPORT INFORMATION
  Report Type: 
  Country: None (occurrence: None)
  Receive Date: 20120607
  Receipt Date: 20120607
  Transmission Date: 20120825
  Serious: Yes (Disabling)
  Sender: FDA-Public Use
  Company Number: None

PATIENT
  Age: 50 Year
  Sex: Female
  Weight: 58.9676 kg

DRUGS (1)
  1. EVAMIST [Suspect]
     Indication: HORMONE REPLACEMENT THERAPY
     Dosage: 2-3 APPLICATIONS/SPRAY - PER DAY TOPICALLY
     Route: 061
     Dates: start: 20091001, end: 20110901

REACTIONS (3)
  - TREATMENT NONCOMPLIANCE [None]
  - ACCIDENTAL EXPOSURE [None]
  - EXPOSURE VIA DIRECT CONTACT [None]
